FAERS Safety Report 7951897-X (Version None)
Quarter: 2011Q4

REPORT INFORMATION
  Report Type: 
  Country: None (occurrence: None)
  Receive Date: 20111201
  Receipt Date: 20111201
  Transmission Date: 20120403
  Serious: Yes (Life-Threatening, Hospitalization)
  Sender: FDA-Public Use
  Company Number: None

PATIENT
  Age: 27 Year
  Sex: Male
  Weight: 60 kg

DRUGS (1)
  1. LITHIUM OROTATE [Suspect]
     Dosage: 1 TAB
     Route: 051

REACTIONS (2)
  - SELF-MEDICATION [None]
  - TOXICITY TO VARIOUS AGENTS [None]
